FAERS Safety Report 8848160 (Version 3)
Quarter: 2013Q1

REPORT INFORMATION
  Report Type: Spontaneous
  Country: JP (occurrence: JP)
  Receive Date: 20121018
  Receipt Date: 20130102
  Transmission Date: 20140127
  Serious: Yes (Hospitalization, Other)
  Sender: FDA-Public Use
  Company Number: JP-PFIZER INC-2012255254

PATIENT
  Age: 74 Year
  Sex: Male
  Weight: 61.2 kg

DRUGS (16)
  1. VFEND [Suspect]
     Indication: PNEUMONIA
     Dosage: 300 MG, 2X/DAY
     Route: 048
     Dates: start: 20120920, end: 20120920
  2. VFEND [Suspect]
     Dosage: 200 MG, 2X/DAY
     Route: 048
     Dates: start: 20120921, end: 20121002
  3. AMBISOME [Suspect]
     Indication: PNEUMONIA
     Dosage: 150 MG, 1X/DAY
     Route: 041
     Dates: start: 20120822, end: 20120824
  4. AMBISOME [Suspect]
     Dosage: 200 MG, 1X/DAY
     Route: 041
     Dates: start: 20120825, end: 20120831
  5. AMBISOME [Suspect]
     Dosage: 250 MG, 1X/DAY
     Route: 041
     Dates: start: 20120901, end: 20120919
  6. CRAVIT [Concomitant]
     Indication: PNEUMONIA
     Dosage: 500 MG, 1X/DAY
     Route: 048
     Dates: start: 20120920, end: 20120920
  7. CRAVIT [Concomitant]
     Dosage: 250 MG, 1X/DAY
     Route: 048
     Dates: start: 20120921, end: 20121002
  8. AMARYL [Concomitant]
     Indication: DIABETES MELLITUS
     Dosage: 1 MG, 1X/DAY
     Route: 048
  9. MICARDIS [Concomitant]
  10. TAKEPRON [Concomitant]
     Indication: GASTRITIS PROPHYLAXIS
     Dosage: 15 MG, 1X/DAY
     Route: 048
  11. DIOVAN ^NOVARTIS^ [Concomitant]
     Indication: HYPERTENSION
     Dosage: 40 MG, 1X/DAY
     Route: 048
  12. SLOW-K [Concomitant]
     Indication: HYPOKALAEMIA
     Dosage: 600 MG, 2X/DAY
     Route: 048
     Dates: start: 20120905, end: 20120910
  13. SLOW-K [Concomitant]
     Dosage: 600 MG, 3X/DAY
     Route: 048
     Dates: start: 20120911, end: 20121002
  14. HABEKACIN [Concomitant]
     Indication: PNEUMONIA
     Dosage: 300 MG, 1X/DAY
     Route: 041
     Dates: start: 20120904, end: 20120919
  15. FINIBAX [Concomitant]
     Indication: PNEUMONIA
     Dosage: 250 MG, 3X/DAY
     Route: 041
     Dates: start: 20120908, end: 20120919
  16. STRONG NEO-MINOPHAGEN C [Concomitant]
     Indication: HEPATIC FUNCTION ABNORMAL
     Dosage: 20 MG, 1X/DAY
     Route: 042
     Dates: start: 20120918, end: 20120928

REACTIONS (3)
  - Rhabdomyolysis [Recovered/Resolved]
  - Renal impairment [Recovered/Resolved]
  - Hepatic function abnormal [Recovered/Resolved]
